FAERS Safety Report 5850773-6 (Version None)
Quarter: 2008Q3

REPORT INFORMATION
  Report Type: 
  Country: None (occurrence: None)
  Receive Date: 20080819
  Receipt Date: 20080819
  Transmission Date: 20090109
  Serious: No
  Sender: FDA-Public Use
  Company Number: None

PATIENT
  Age: 63 Year
  Sex: Female
  Weight: 61 kg

DRUGS (2)
  1. LITHIUM CARBONATE [Suspect]
     Indication: BIPOLAR I DISORDER
     Dosage: 300 MG TID PO
     Route: 048
     Dates: start: 20080623, end: 20080723
  2. LISINOPRIL [Suspect]
     Indication: HYPERTENSION
     Dosage: 5 MG EVERYDAY PO
     Route: 048
     Dates: start: 20080603, end: 20080723

REACTIONS (7)
  - ABASIA [None]
  - ATAXIA [None]
  - MUSCULAR WEAKNESS [None]
  - NAUSEA [None]
  - RENAL FAILURE ACUTE [None]
  - THERAPEUTIC AGENT TOXICITY [None]
  - VOMITING [None]
